FAERS Safety Report 9747692 (Version 2)
Quarter: 2013Q4

REPORT INFORMATION
  Report Type: Spontaneous
  Country: US (occurrence: None)
  Receive Date: 20131206
  Receipt Date: 20131223
  Transmission Date: 20140711
  Serious: Yes (Hospitalization)
  Sender: FDA-Public Use
  Company Number: SYM-2013-13452

PATIENT
  Age: 70 Year
  Sex: Male

DRUGS (3)
  1. DILTIAZEM HYDROCHLORIDE [Suspect]
     Indication: ATRIAL FIBRILLATION
     Dosage: 20 MG, INTRAVENOUS ( NOT OTHERWISE SPECIFIED)
     Route: 042
  2. ENOXAPARIN (ENOXAPARIN) (ENOXAPARIN) [Concomitant]
  3. THERAPEUTIC RADIOPHARMACEUTICALS [Concomitant]

REACTIONS (8)
  - Acute hepatic failure [None]
  - Hypotension [None]
  - Renal failure acute [None]
  - Coagulopathy [None]
  - Thrombocytopenia [None]
  - Oedema peripheral [None]
  - Ascites [None]
  - Pleural effusion [None]
